FAERS Safety Report 5472336-7 (Version None)
Quarter: 2007Q3

REPORT INFORMATION
  Report Type: 
  Country: None (occurrence: None)
  Receive Date: 20070930
  Receipt Date: 20070926
  Transmission Date: 20080115
  Serious: Yes (Hospitalization)
  Sender: FDA-Public Use
  Company Number: US-ELI_LILLY_AND_COMPANY-US200709006263

PATIENT
  Age: 83 Year
  Sex: Female

DRUGS (6)
  1. CYMBALTA [Suspect]
     Indication: DEPRESSION
     Dosage: 60 MG, DAILY (1/D)
     Route: 048
  2. BENICAR [Concomitant]
  3. METOPROLOL SUCCINATE [Concomitant]
  4. DILTIAZEM [Concomitant]
  5. NEXIUM [Concomitant]
  6. AMBIEN [Concomitant]
     Indication: INSOMNIA

REACTIONS (3)
  - HALLUCINATION [None]
  - INSOMNIA [None]
  - INTESTINAL OBSTRUCTION [None]
